FAERS Safety Report 8121837-1 (Version None)
Quarter: 2012Q1

REPORT INFORMATION
  Report Type: 
  Country: None (occurrence: None)
  Receive Date: 20120208
  Receipt Date: 20120202
  Transmission Date: 20120608
  Serious: Yes (Other)
  Sender: FDA-Public Use
  Company Number: US-PFIZER INC-2012030163

PATIENT
  Sex: Male

DRUGS (2)
  1. NEURONTIN [Suspect]
     Indication: BACK DISORDER
     Dosage: UNK
     Route: 048
  2. NEURONTIN [Suspect]
     Indication: MUSCULOSKELETAL DISCOMFORT

REACTIONS (2)
  - ACCIDENT [None]
  - MIGRAINE [None]
